FAERS Safety Report 12328747 (Version 1)
Quarter: 2016Q2

REPORT INFORMATION
  Report Type: Spontaneous
  Country: US (occurrence: US)
  Receive Date: 20160503
  Receipt Date: 20160503
  Transmission Date: 20160815
  Serious: No
  Sender: FDA-Public Use
  Company Number: US-BEH-2015050511

PATIENT
  Sex: Female
  Weight: 81 kg

DRUGS (15)
  1. BUSPIRONE 10MG [Concomitant]
     Dosage: 1 DOSE AS DIRECTED
  2. LIDOCAINE/PRILOCAINE [Concomitant]
     Dosage: 2.5% TOPICALLY PRIOR TO INFUSION
  3. IMITREX 100 MG [Concomitant]
     Dosage: 1 TABLET BY MOUTH AS NEEDED
  4. MULTIVITAMIN [Concomitant]
     Active Substance: VITAMINS
     Dosage: 1 TABLET BY MOUTH DAILY
  5. HIZENTRA [Suspect]
     Active Substance: HUMAN IMMUNOGLOBULIN G
     Indication: PRODUCT USED FOR UNKNOWN INDICATION
     Dosage: THERAPY START DATE FEB,2015
     Route: 058
  6. FLONASE 0.05% NASAL SPRAY [Concomitant]
     Dosage: 2 SPRAYS INTRANASALY DAILY
     Route: 045
  7. SPRINTEC [Concomitant]
     Active Substance: ETHINYL ESTRADIOL\NORGESTIMATE
     Dosage: 1 DOSE BY MOUTH DAILY
     Route: 048
  8. LMX 4% [Concomitant]
     Dosage: APPLY TOPICALLY PRIOR TO INFUSION
     Route: 061
  9. VALTREX [Concomitant]
     Active Substance: VALACYCLOVIR HYDROCHLORIDE
     Dosage: 1 CAPSULE BY MOUTH AS NEEDED
  10. VITAMIN B COMPLEX [Concomitant]
     Active Substance: CYANOCOBALAMIN\DEXPANTHENOL\NIACINAMIDE\PYRIDOXINE HYDROCHLORIDE\RIBOFLAVIN 5^-PHOSPHATE SODIUM\THIAMINE HYDROCHLORIDE\VITAMIN B COMPLEX
     Dosage: 1 TABLET BY MOUTH DAILY
     Route: 048
  11. EFFEXOR XR 75 MG [Concomitant]
     Dosage: 1 DOSE AS DIRECTED
  12. VITAMIN D 1000UNIT [Concomitant]
     Dosage: 1 DOSE AS DIRECTED
  13. DIPHENHYDRAMINE 25MG [Concomitant]
     Active Substance: DIPHENHYDRAMINE
     Dosage: 1 TABLET BY MOUTH AS DIRECTED
     Route: 048
  14. EPIPEN 0.3 MG [Concomitant]
     Indication: ANAPHYLACTIC REACTION
     Dosage: IM AS NEEDED
     Route: 030
  15. IRON [Concomitant]
     Active Substance: IRON
     Dosage: 1 TABLET BY MOUTH THREE TIMES DAILY
     Route: 048

REACTIONS (2)
  - Haemoglobin decreased [Unknown]
  - White blood cell count decreased [Unknown]
